FAERS Safety Report 23395361 (Version 1)
Quarter: 2024Q1

REPORT INFORMATION
  Report Type: Spontaneous
  Country: CN (occurrence: CN)
  Receive Date: 20240112
  Receipt Date: 20240112
  Transmission Date: 20240410
  Serious: Yes (Life-Threatening, Hospitalization, Other)
  Sender: FDA-Public Use
  Company Number: CN-Accord-400736

PATIENT
  Age: 43 Year
  Sex: Female

DRUGS (3)
  1. DECITABINE [Suspect]
     Active Substance: DECITABINE
     Indication: Peripheral T-cell lymphoma unspecified
     Dosage: 25 MG IV D2-6
     Route: 042
     Dates: start: 20190129
  2. CAMRELIZUMAB [Suspect]
     Active Substance: CAMRELIZUMAB
     Indication: Peripheral T-cell lymphoma unspecified
     Dosage: (200 MG IV EVERY 3 WEEKS
     Route: 042
     Dates: start: 20190129
  3. DECITABINE [Suspect]
     Active Substance: DECITABINE
     Indication: Peripheral T-cell lymphoma unspecified
     Dosage: 15 MG/M2?, DAYS 1 TO 5
     Route: 042
     Dates: start: 20190129

REACTIONS (5)
  - Treatment failure [Unknown]
  - Myelosuppression [Unknown]
  - Pneumonia [Unknown]
  - Haematological infection [Unknown]
  - Staphylococcal infection [Unknown]
